FAERS Safety Report 10610598 (Version 2)
Quarter: 2014Q4

REPORT INFORMATION
  Report Type: Spontaneous
  Country: US (occurrence: US)
  Receive Date: 20141126
  Receipt Date: 20141126
  Transmission Date: 20150529
  Serious: Yes (Other)
  Sender: FDA-Public Use
  Company Number: US-MALLINCKRODT-T201403117

PATIENT
  Sex: Female

DRUGS (1)
  1. GABLOFEN [Suspect]
     Active Substance: BACLOFEN
     Indication: PRODUCT USED FOR UNKNOWN INDICATION
     Dosage: 1000, UNK
     Route: 037

REACTIONS (4)
  - Drug withdrawal syndrome [Recovered/Resolved]
  - Seizure [Recovered/Resolved]
  - Muscle spasticity [Recovered/Resolved]
  - Underdose [Recovered/Resolved]
